FAERS Safety Report 8287787-5 (Version None)
Quarter: 2012Q2

REPORT INFORMATION
  Report Type: 
  Country: None (occurrence: None)
  Receive Date: 20120416
  Receipt Date: 20120410
  Transmission Date: 20120825
  Serious: Yes (Hospitalization)
  Sender: FDA-Public Use
  Company Number: US-MERCK-1201USA01163

PATIENT
  Age: 68 Year
  Sex: Female

DRUGS (3)
  1. FOSAMAX [Suspect]
     Indication: OSTEOPOROSIS
     Route: 048
     Dates: start: 20000101, end: 20071001
  2. FOSAMAX [Suspect]
     Route: 048
     Dates: start: 20000101, end: 20071001
  3. FOSAMAX PLUS D [Suspect]
     Indication: OSTEOPOROSIS
     Route: 048
     Dates: start: 20070101, end: 20100401

REACTIONS (4)
  - BLOOD CHOLESTEROL INCREASED [None]
  - FRACTURE [None]
  - FEMUR FRACTURE [None]
  - HAEMATURIA [None]
